FAERS Safety Report 21002996 (Version 1)
Quarter: 2022Q2

REPORT INFORMATION
  Report Type: Spontaneous
  Country: US (occurrence: US)
  Receive Date: 20220624
  Receipt Date: 20220624
  Transmission Date: 20220721
  Serious: Yes (Other)
  Sender: FDA-Public Use
  Company Number: US-GLAXOSMITHKLINE-USCH2022AMR022027

PATIENT

DRUGS (5)
  1. VOLTAREN [Suspect]
     Active Substance: DICLOFENAC SODIUM
     Indication: Product used for unknown indication
     Dosage: UNK
  2. ENTRESTO [Suspect]
     Active Substance: SACUBITRIL\VALSARTAN
     Indication: Product used for unknown indication
     Dosage: UNK UNK, BID (97/103 MG)
     Route: 048
  3. ENTRESTO [Suspect]
     Active Substance: SACUBITRIL\VALSARTAN
     Dosage: 2 DF, BID
  4. FUROSEMIDE [Suspect]
     Active Substance: FUROSEMIDE
     Indication: Product used for unknown indication
     Dosage: UNK
  5. CARVEDILOL [Suspect]
     Active Substance: CARVEDILOL
     Indication: Product used for unknown indication
     Dosage: UNK

REACTIONS (27)
  - Pulmonary congestion [Unknown]
  - Cardiac flutter [Unknown]
  - Atrial fibrillation [Unknown]
  - COVID-19 [Unknown]
  - Ill-defined disorder [Unknown]
  - Weight increased [Unknown]
  - Pain in extremity [Recovered/Resolved]
  - Rhinorrhoea [Unknown]
  - Sneezing [Unknown]
  - Cough [Unknown]
  - Nasal congestion [Unknown]
  - Heart rate increased [Unknown]
  - Stress [Unknown]
  - Tremor [Unknown]
  - Balance disorder [Unknown]
  - Depressed mood [Unknown]
  - Poor quality sleep [Unknown]
  - Pain [Unknown]
  - Feeling abnormal [Unknown]
  - Arthralgia [Unknown]
  - Illness [Unknown]
  - Palpitations [Unknown]
  - Neuralgia [Unknown]
  - Sciatica [Unknown]
  - Fatigue [Unknown]
  - Product use in unapproved indication [Unknown]
  - Drug ineffective for unapproved indication [Unknown]

NARRATIVE: CASE EVENT DATE: 20211231
